FAERS Safety Report 4958198-2 (Version None)
Quarter: 2006Q1

REPORT INFORMATION
  Report Type: 
  Country: None (occurrence: None)
  Receive Date: 20060330
  Receipt Date: 20060310
  Transmission Date: 20060701
  Serious: Yes (Other)
  Sender: FDA-Public Use
  Company Number: US-ROCHE-440244

PATIENT
  Age: 79 Year
  Sex: Female
  Weight: 73.5 kg

DRUGS (1)
  1. BONIVA [Suspect]
     Indication: DRUG USE FOR UNKNOWN INDICATION
     Route: 048
     Dates: start: 20050512, end: 20060103

REACTIONS (1)
  - ERYTHEMA MULTIFORME [None]
